FAERS Safety Report 6241595-5 (Version None)
Quarter: 2009Q2

REPORT INFORMATION
  Report Type: 
  Country: None (occurrence: None)
  Receive Date: 20090623
  Receipt Date: 20041129
  Transmission Date: 20091009
  Serious: Yes (Hospitalization)
  Sender: FDA-Public Use
  Company Number: CA-ROCHE-386588

PATIENT
  Sex: Male
  Weight: 73.8 kg

DRUGS (199)
  1. DACLIZUMAB [Suspect]
     Route: 042
     Dates: start: 20041006, end: 20041006
  2. DACLIZUMAB [Suspect]
     Dosage: A TOTAL OF 4 DOSES.
     Route: 042
     Dates: start: 20041020, end: 20041202
  3. MYCOPHENOLATE MOFETIL [Suspect]
     Route: 048
     Dates: start: 20041006
  4. MYCOPHENOLATE MOFETIL [Suspect]
     Route: 048
     Dates: start: 20041007, end: 20041010
  5. MYCOPHENOLATE MOFETIL [Suspect]
     Route: 048
     Dates: start: 20041012
  6. MYCOPHENOLATE MOFETIL [Suspect]
     Route: 048
     Dates: start: 20041013
  7. MYCOPHENOLATE MOFETIL [Suspect]
     Route: 048
     Dates: start: 20041018
  8. MYCOPHENOLATE MOFETIL [Suspect]
     Route: 048
     Dates: start: 20041019, end: 20041023
  9. MYCOPHENOLATE MOFETIL [Suspect]
     Route: 048
     Dates: start: 20041108, end: 20041114
  10. MYCOPHENOLATE MOFETIL [Suspect]
     Route: 048
     Dates: start: 20041117
  11. MYCOPHENOLATE MOFETIL [Suspect]
     Route: 048
     Dates: start: 20041118
  12. MYCOPHENOLATE MOFETIL [Suspect]
     Route: 048
     Dates: start: 20041122
  13. MYCOPHENOLATE MOFETIL [Suspect]
     Route: 048
     Dates: start: 20041123
  14. MYCOPHENOLATE MOFETIL [Suspect]
     Route: 048
     Dates: start: 20041127
  15. MYCOPHENOLATE MOFETIL [Suspect]
     Route: 048
     Dates: start: 20041128
  16. MYCOPHENOLATE MOFETIL [Suspect]
     Route: 048
     Dates: start: 20041207
  17. MYCOPHENOLATE MOFETIL [Suspect]
     Route: 048
     Dates: start: 20041208
  18. MYCOPHENOLATE MOFETIL [Suspect]
     Route: 048
     Dates: start: 20041209
  19. MYCOPHENOLATE MOFETIL [Suspect]
     Route: 048
     Dates: start: 20041214
  20. MYCOPHENOLATE MOFETIL [Suspect]
     Route: 048
     Dates: start: 20050114, end: 20050115
  21. MYCOPHENOLATE MOFETIL [Suspect]
     Route: 048
     Dates: start: 20050119
  22. MYCOPHENOLATE MOFETIL [Suspect]
     Route: 048
     Dates: start: 20050120
  23. MYCOPHENOLATE MOFETIL [Suspect]
     Route: 048
     Dates: start: 20050121
  24. MYCOPHENOLATE MOFETIL [Suspect]
     Route: 048
     Dates: start: 20050122
  25. MYCOPHENOLATE MOFETIL [Suspect]
     Route: 048
     Dates: start: 20050124
  26. MYCOPHENOLATE MOFETIL [Suspect]
     Route: 048
     Dates: start: 20050125
  27. MYCOPHENOLATE MOFETIL [Suspect]
     Route: 048
     Dates: start: 20050211
  28. MYCOPHENOLATE MOFETIL [Suspect]
     Route: 048
     Dates: start: 20050227
  29. MYCOPHENOLATE MOFETIL [Suspect]
     Route: 048
     Dates: start: 20050228
  30. MYCOPHENOLATE MOFETIL [Suspect]
     Route: 048
     Dates: start: 20050302
  31. MYCOPHENOLATE MOFETIL [Suspect]
     Route: 048
     Dates: start: 20050303
  32. MYCOPHENOLATE MOFETIL [Suspect]
     Route: 048
     Dates: start: 20050304
  33. MYCOPHENOLATE MOFETIL [Suspect]
     Route: 048
     Dates: start: 20050305
  34. MYCOPHENOLATE MOFETIL [Suspect]
     Route: 048
     Dates: start: 20050310
  35. MYCOPHENOLATE MOFETIL [Suspect]
     Route: 048
     Dates: start: 20050311
  36. MYCOPHENOLATE MOFETIL [Suspect]
     Route: 048
     Dates: start: 20050312
  37. MYCOPHENOLATE MOFETIL [Suspect]
     Route: 048
     Dates: start: 20050317, end: 20050318
  38. MYCOPHENOLATE MOFETIL [Suspect]
     Route: 048
     Dates: start: 20050330
  39. MYCOPHENOLATE MOFETIL [Suspect]
     Route: 048
     Dates: start: 20050414
  40. MYCOPHENOLATE MOFETIL [Suspect]
     Route: 048
     Dates: start: 20050429
  41. MYCOPHENOLATE MOFETIL [Suspect]
     Route: 048
     Dates: start: 20050505
  42. MYCOPHENOLATE MOFETIL [Suspect]
     Route: 048
     Dates: start: 20050506, end: 20050507
  43. MYCOPHENOLATE MOFETIL [Suspect]
     Route: 048
     Dates: end: 20050511
  44. MYCOPHENOLATE MOFETIL [Suspect]
     Route: 048
     Dates: start: 20050512
  45. MYCOPHENOLATE MOFETIL [Suspect]
     Route: 048
     Dates: start: 20050524
  46. MYCOPHENOLATE MOFETIL [Suspect]
     Route: 048
     Dates: start: 20050525
  47. MYCOPHENOLATE MOFETIL [Suspect]
     Route: 048
     Dates: start: 20050806
  48. TACROLIMUS [Suspect]
     Route: 048
     Dates: start: 20050809
  49. CYCLOSPORINE [Suspect]
     Dosage: DRUG REPORTED: CYCLOSPORIN
     Route: 048
     Dates: start: 20041006, end: 20041211
  50. CYCLOSPORINE [Suspect]
     Route: 048
     Dates: start: 20041213
  51. CYCLOSPORINE [Suspect]
     Route: 048
     Dates: start: 20050225
  52. CYCLOSPORINE [Suspect]
     Route: 048
     Dates: start: 20050226
  53. CYCLOSPORINE [Suspect]
     Route: 048
     Dates: start: 20050324
  54. CYCLOSPORINE [Suspect]
     Route: 048
     Dates: start: 20050330, end: 20050809
  55. CYCLOSPORINE [Suspect]
     Dosage: DRUG REPORTED: CYCLOSPORIN, FORM: VIAL
     Route: 048
     Dates: start: 20041212
  56. PREDNISOLONE [Suspect]
     Route: 048
     Dates: start: 20041012
  57. PREDNISOLONE [Suspect]
     Route: 048
     Dates: start: 20041013, end: 20041014
  58. PREDNISOLONE [Suspect]
     Route: 048
     Dates: start: 20041015
  59. PREDNISOLONE [Suspect]
     Route: 048
     Dates: start: 20041019
  60. PREDNISOLONE [Suspect]
     Route: 048
     Dates: start: 20041020, end: 20041130
  61. PREDNISOLONE [Suspect]
     Route: 048
     Dates: start: 20041201, end: 20041206
  62. PREDNISOLONE [Suspect]
     Route: 048
     Dates: start: 20041207, end: 20050122
  63. PREDNISOLONE [Suspect]
     Route: 048
     Dates: start: 20050124, end: 20050312
  64. PREDNISOLONE [Suspect]
     Route: 048
     Dates: start: 20050315, end: 20050505
  65. PREDNISOLONE [Suspect]
     Route: 048
     Dates: start: 20050508
  66. PANTOPRAZOLE SODIUM [Concomitant]
     Route: 048
     Dates: start: 20041011
  67. LIPITOR [Concomitant]
     Route: 048
     Dates: start: 20041215
  68. VALCYTE [Concomitant]
     Route: 048
     Dates: start: 20041109
  69. VALCYTE [Concomitant]
     Route: 048
     Dates: start: 20041118
  70. VALCYTE [Concomitant]
     Route: 048
     Dates: start: 20041126, end: 20050113
  71. VALCYTE [Concomitant]
     Route: 048
     Dates: start: 20050404, end: 20050414
  72. ARANESP [Concomitant]
     Route: 058
     Dates: start: 20041014, end: 20041218
  73. NORVASC [Concomitant]
     Route: 048
     Dates: start: 20041009, end: 20050312
  74. THIAZIDE [Concomitant]
     Dosage: FREQUENCY: DIE
     Route: 048
     Dates: end: 20041014
  75. SEPTRA [Concomitant]
     Route: 048
     Dates: start: 20041007, end: 20051008
  76. ACTONEL [Concomitant]
     Route: 048
  77. LOPRESOR [Concomitant]
     Route: 048
     Dates: start: 20041009, end: 20050312
  78. CALCIUM [Concomitant]
     Route: 048
  79. LASIX [Concomitant]
     Route: 048
     Dates: start: 20041127
  80. LASIX [Concomitant]
     Route: 048
     Dates: start: 20050210
  81. LASIX [Concomitant]
     Route: 048
     Dates: start: 20050508
  82. PHOSPHATE [Concomitant]
     Dosage: DOSE OF 1000 MG A DAY STARTED ON 22 NOVEMBER 2004.
     Route: 048
  83. CLAVULIN [Concomitant]
     Dates: start: 20041118, end: 20041125
  84. ATACAND [Concomitant]
     Dates: start: 20050210, end: 20050225
  85. CATAPRES [Concomitant]
     Dates: start: 20041012
  86. HEPARIN [Concomitant]
     Dosage: ROUTE: SUBCUTANEOUS
     Route: 050
     Dates: start: 20041007, end: 20041022
  87. HEPARIN [Concomitant]
     Dosage: ROUTE: SUBCUTANEOUS
     Route: 050
     Dates: start: 20041130, end: 20041210
  88. HEPARIN [Concomitant]
     Route: 050
     Dates: start: 20050308
  89. HEPARIN [Concomitant]
     Dosage: ROUTE: IV
     Route: 050
     Dates: start: 20050308, end: 20050313
  90. HEPARIN [Concomitant]
     Dosage: ROUTE: IV
     Route: 050
     Dates: start: 20050323, end: 20050329
  91. HEPARIN [Concomitant]
     Dosage: ROUTE: IV
     Route: 050
     Dates: end: 20050404
  92. HEPARIN [Concomitant]
     Dosage: ROUTE: IV
     Route: 050
     Dates: start: 20050508
  93. HEPARIN [Concomitant]
     Dosage: ROUTE: IV
     Route: 050
     Dates: start: 20050512, end: 20050518
  94. ACETAMINOPHEN [Concomitant]
     Dosage: DRUG REPORTED: ACETAMINOPHENE
     Route: 048
     Dates: start: 20041023, end: 20041102
  95. ACETAMINOPHEN [Concomitant]
     Route: 048
     Dates: start: 20050227, end: 20050303
  96. ACETYLCYSTEINE [Concomitant]
     Route: 048
     Dates: start: 20050118
  97. ACETYLCYSTEINE [Concomitant]
     Route: 048
     Dates: start: 20050120
  98. ALFACALCIDOL [Concomitant]
     Route: 048
     Dates: start: 20050721
  99. ALUMINUM HYDROXIDE [Concomitant]
     Route: 048
     Dates: start: 20041012, end: 20041019
  100. AMLODIPINE BESYLATE [Concomitant]
     Route: 048
     Dates: start: 20041009
  101. AMLODIPINE BESYLATE [Concomitant]
     Route: 048
     Dates: start: 20041209, end: 20050211
  102. AMLODIPINE BESYLATE [Concomitant]
     Route: 048
     Dates: start: 20050228, end: 20050312
  103. AMLODIPINE BESYLATE [Concomitant]
     Route: 048
     Dates: start: 20050318, end: 20050628
  104. AMOXICILLIN TRIHYDRATE [Concomitant]
     Route: 048
     Dates: start: 20041116, end: 20041119
  105. AMOXICILLIN TRIHYDRATE [Concomitant]
     Route: 048
     Dates: start: 20041209, end: 20041224
  106. AMOXICILLIN TRIHYDRATE [Concomitant]
     Route: 048
     Dates: start: 20050114, end: 20050124
  107. AMOXICILLIN TRIHYDRATE [Concomitant]
     Route: 048
     Dates: start: 20050325, end: 20050331
  108. AMOXICILLIN AND CLAVULANATE POTASSIUM [Concomitant]
     Dosage: DRUG REPORTED: AMOXICILLIN TRIHYDRATE/CLAVULANATE POTASSIUM
     Route: 048
     Dates: start: 20041118, end: 20041127
  109. AMOXICILLIN AND CLAVULANATE POTASSIUM [Concomitant]
     Route: 048
     Dates: start: 20050513, end: 20050521
  110. AMPICILLIN [Concomitant]
     Route: 042
     Dates: start: 20041126, end: 20041209
  111. AMPICILLIN [Concomitant]
     Route: 042
     Dates: start: 20050316, end: 20050324
  112. ATORVASTATIN CALCIUM [Concomitant]
     Route: 048
     Dates: start: 20041215
  113. CALCIUM CARBONATE [Concomitant]
     Route: 048
     Dates: start: 20041110
  114. CANDESARTAN CILEXETIL [Concomitant]
     Route: 048
     Dates: start: 20050210, end: 20050225
  115. CANDESARTAN CILEXETIL [Concomitant]
     Route: 048
     Dates: start: 20050721
  116. CEFAZOLIN [Concomitant]
     Dosage: DRUG REPORTED: CEFAZOLIN SODIUM
     Route: 042
     Dates: start: 20041007, end: 20041012
  117. CEFAZOLIN [Concomitant]
     Route: 042
     Dates: start: 20050121
  118. CEFAZOLIN [Concomitant]
     Route: 042
     Dates: start: 20050505
  119. CIPROFLOXACIN HYDROCHLORIDE [Concomitant]
     Route: 048
     Dates: start: 20050112, end: 20050114
  120. CIPROFLOXACIN HYDROCHLORIDE [Concomitant]
     Route: 048
     Dates: start: 20050501, end: 20050503
  121. CLONIDINE [Concomitant]
     Dosage: DRUG REPORTED: CLONIDINE HYDROCHLORIDE
     Route: 048
     Dates: start: 20041202, end: 20041212
  122. CLONIDINE [Concomitant]
     Route: 048
     Dates: start: 20050227, end: 20050315
  123. DIPHENHYDRAMINE HYDROCHLORIDE [Concomitant]
     Route: 042
     Dates: start: 20041023, end: 20041102
  124. DOCUSATE SODIUM [Concomitant]
     Route: 048
     Dates: start: 20041012, end: 20050606
  125. FAMOTIDINE [Concomitant]
     Route: 042
     Dates: start: 20041008, end: 20041010
  126. FENTANYL [Concomitant]
     Route: 042
     Dates: start: 20050307
  127. FENTANYL [Concomitant]
     Route: 042
     Dates: start: 20050312
  128. FENTANYL [Concomitant]
     Route: 042
     Dates: start: 20050329
  129. GANCICLOVIR [Concomitant]
     Dosage: DRUG REPORTED: GANCYCLOVIR
     Route: 042
     Dates: start: 20041022
  130. GANCICLOVIR [Concomitant]
     Route: 042
     Dates: start: 20050317, end: 20050404
  131. GANCICLOVIR [Concomitant]
     Dosage: DRUG REPORTED: GANCYCLOVIR
     Route: 048
     Dates: start: 20041101, end: 20041109
  132. HYDROCHLOROTHIAZIDE [Concomitant]
     Route: 048
     Dates: start: 20041109, end: 20041113
  133. HYDROMORPHONE HYDROCHLORIDE [Concomitant]
     Dosage: ROUTE: IV
     Route: 050
     Dates: start: 20041006
  134. HYDROMORPHONE HYDROCHLORIDE [Concomitant]
     Dosage: ROUTE: SC
     Route: 050
     Dates: start: 20041009
  135. HYDROMORPHONE HYDROCHLORIDE [Concomitant]
     Dosage: ROUTE: SC
     Route: 050
     Dates: start: 20041116
  136. HYDROMORPHONE HYDROCHLORIDE [Concomitant]
     Dosage: ROUTE: IV
     Route: 050
     Dates: start: 20041129
  137. HYDROMORPHONE HYDROCHLORIDE [Concomitant]
     Dosage: ROUTE: SC
     Route: 050
     Dates: start: 20041203
  138. HYDROMORPHONE HYDROCHLORIDE [Concomitant]
     Dosage: ROUTE: SC
     Route: 050
     Dates: start: 20050503, end: 20050523
  139. HYDROMORPHONE HYDROCHLORIDE [Concomitant]
     Route: 048
     Dates: start: 20041014
  140. HYDROMORPHONE HYDROCHLORIDE [Concomitant]
     Route: 048
     Dates: start: 20041216
  141. HYDROMORPHONE HYDROCHLORIDE [Concomitant]
     Route: 048
     Dates: start: 20050524, end: 20050527
  142. LACTULOSE [Concomitant]
     Route: 048
     Dates: start: 20050414, end: 20050606
  143. MAGNESIUM GLUCOHEPTONATE [Concomitant]
     Route: 048
     Dates: start: 20041203
  144. MAGNESIUM GLUCOHEPTONATE [Concomitant]
     Route: 048
     Dates: start: 20050123, end: 20050210
  145. MAGNESIUM GLUCOHEPTONATE [Concomitant]
     Route: 048
     Dates: start: 20050509, end: 20050627
  146. MAGNESIUM GLUCONATE [Concomitant]
     Route: 048
     Dates: start: 20041201, end: 20041216
  147. MEGLUMINE IOXITALAMATE [Concomitant]
     Dosage: DRUG REPORTED: MEGLUMINE IOXITALAMATE/SODIUM OIXITAL
     Route: 048
     Dates: start: 20050504
  148. METOPROLOL TARTRATE [Concomitant]
     Dosage: DRUG REPORTED: METOPROLOL TARTATE
     Route: 048
     Dates: start: 20041009
  149. METOPROLOL TARTRATE [Concomitant]
     Route: 048
     Dates: start: 20041115
  150. METOPROLOL TARTRATE [Concomitant]
     Route: 048
     Dates: start: 20050312
  151. METOPROLOL TARTRATE [Concomitant]
     Route: 048
     Dates: start: 20050315
  152. METRONIDAZOLE [Concomitant]
     Route: 048
     Dates: start: 20041115, end: 20041118
  153. MIDAZOLAM HYDROCHLORIDE [Concomitant]
     Route: 042
     Dates: start: 20050307
  154. MIDAZOLAM HYDROCHLORIDE [Concomitant]
     Route: 042
     Dates: start: 20050329
  155. NYSTATIN [Concomitant]
     Route: 048
     Dates: start: 20041009, end: 20050113
  156. NYSTATIN [Concomitant]
     Route: 048
     Dates: start: 20050115, end: 20050330
  157. OXAZEPAM [Concomitant]
     Route: 048
     Dates: start: 20040301, end: 20050305
  158. PANTOPRAZOLE SODIUM [Concomitant]
     Dosage: DRUG REPORTED: PANTAPRAZOLE SODIUM
     Route: 048
     Dates: start: 20041011
  159. PANTOPRAZOLE SODIUM [Concomitant]
     Route: 048
     Dates: start: 20050508
  160. PANTOPRAZOLE SODIUM [Concomitant]
     Dosage: DRUG REPORTED: PANTAPRAZOLE SODIUM
     Route: 042
     Dates: start: 20050505, end: 20050507
  161. PETHIDINE HYDROCHLORIDE [Concomitant]
     Route: 042
     Dates: start: 20050505
  162. PIPERACILLIN SODIUM AND TAZOBACTAM SODIUM [Concomitant]
     Dosage: DRUG REPORTED: PIPERACILLIN SODIUM/TAZOBACTAM SODIUM
     Route: 042
     Dates: start: 20050506
  163. PIPERACILLIN SODIUM AND TAZOBACTAM SODIUM [Concomitant]
     Route: 042
     Dates: start: 20050510, end: 20050514
  164. PROCHLORPERAZINE MESYLATE [Concomitant]
     Route: 042
     Dates: start: 20050503
  165. RANITIDINE HYDROCHLORIDE [Concomitant]
     Route: 048
     Dates: start: 20041010, end: 20041019
  166. RISEDRONATE SODIUM [Concomitant]
     Dosage: DRUG REPORTED: RISEDRONATE SODIUM HEMIPENTAHYDRATE
     Route: 048
     Dates: start: 20051110
  167. SENNOSIDES [Concomitant]
     Route: 048
     Dates: start: 20041122, end: 20050606
  168. SODIUM ACID PHOSPHATE [Concomitant]
     Route: 048
     Dates: start: 20041122, end: 20050211
  169. SODIUM ACID PHOSPHATE [Concomitant]
     Route: 048
     Dates: start: 20050509, end: 20050628
  170. SODIUM BICARBONATE [Concomitant]
     Route: 042
     Dates: start: 20041116, end: 20050118
  171. SODIUM BICARBONATE [Concomitant]
     Route: 042
     Dates: start: 20050119
  172. SODIUM POLYSTYRENE SULFONATE [Concomitant]
     Dosage: DRUG REPORTED: SODIUM POLYSTERENE SULFONATE
     Route: 048
     Dates: start: 20041016
  173. SODIUM POLYSTYRENE SULFONATE [Concomitant]
     Route: 048
     Dates: start: 20041018, end: 20050311
  174. SODIUM POLYSTYRENE SULFONATE [Concomitant]
     Dosage: DRUG REPORTED: SODIUM POLYSTERENE SULFONATE
     Route: 048
     Dates: start: 20050312, end: 20050324
  175. SODIUM POLYSTYRENE SULFONATE [Concomitant]
     Dosage: DRUG REPORTED: SODIUM POLYSTERENE SULFONATE
     Route: 048
     Dates: start: 20050325
  176. SODIUM POLYSTYRENE SULFONATE [Concomitant]
     Route: 048
     Dates: start: 20050329
  177. SODIUM POLYSTYRENE SULFONATE [Concomitant]
     Route: 048
     Dates: start: 20050330, end: 20050401
  178. SODIUM POLYSTYRENE SULFONATE [Concomitant]
     Dosage: DRUG REPORTED: SODIUM POLYSTERENE SULFONATE
     Route: 048
     Dates: start: 20050404
  179. VITAMIN K [Concomitant]
     Route: 048
     Dates: start: 20041012
  180. WARFARIN SODIUM [Concomitant]
     Route: 048
     Dates: start: 20050329, end: 20050503
  181. METHYLPREDNISOLONE SODIUM SUCCINATE [Suspect]
     Dosage: ROUTE: IV
     Route: 050
     Dates: start: 20041006
  182. METHYLPREDNISOLONE SODIUM SUCCINATE [Suspect]
     Dosage: ROUTE: IV
     Route: 050
     Dates: start: 20041007
  183. METHYLPREDNISOLONE SODIUM SUCCINATE [Suspect]
     Dosage: ROUTE: IV
     Route: 050
     Dates: start: 20041008, end: 20041009
  184. METHYLPREDNISOLONE SODIUM SUCCINATE [Suspect]
     Dosage: ROUTE: IV
     Route: 050
     Dates: start: 20041010
  185. METHYLPREDNISOLONE SODIUM SUCCINATE [Suspect]
     Dosage: ROUTE: IV
     Route: 050
     Dates: start: 20041015
  186. METHYLPREDNISOLONE SODIUM SUCCINATE [Suspect]
     Dosage: ROUTE: IV
     Route: 050
     Dates: start: 20041016, end: 20041019
  187. METHYLPREDNISOLONE SODIUM SUCCINATE [Suspect]
     Dosage: ROUTE: IV
     Route: 050
     Dates: start: 20041207
  188. METHYLPREDNISOLONE SODIUM SUCCINATE [Suspect]
     Dosage: ROUTE: IV
     Route: 050
     Dates: start: 20041208, end: 20041211
  189. METHYLPREDNISOLONE SODIUM SUCCINATE [Suspect]
     Dosage: ROUTE: ORAL
     Route: 050
     Dates: start: 20050801, end: 20050804
  190. HYDROCORTISONE SODIUM SUCCINATE [Suspect]
     Route: 042
     Dates: start: 20041023, end: 20041101
  191. HYDROCORTISONE SODIUM SUCCINATE [Suspect]
     Route: 042
     Dates: start: 20041115
  192. HYDROCORTISONE SODIUM SUCCINATE [Suspect]
     Route: 042
     Dates: start: 20041116
  193. HYDROCORTISONE SODIUM SUCCINATE [Suspect]
     Route: 042
     Dates: start: 20041129
  194. HYDROCORTISONE SODIUM SUCCINATE [Suspect]
     Route: 042
     Dates: start: 20041130
  195. HYDROCORTISONE SODIUM SUCCINATE [Suspect]
     Route: 042
     Dates: start: 20050121, end: 20050124
  196. HYDROCORTISONE SODIUM SUCCINATE [Suspect]
     Route: 042
     Dates: start: 20050305, end: 20050308
  197. HYDROCORTISONE SODIUM SUCCINATE [Suspect]
     Route: 042
     Dates: start: 20050312
  198. HYDROCORTISONE SODIUM SUCCINATE [Suspect]
     Route: 042
     Dates: start: 20050315
  199. HYDROCORTISONE SODIUM SUCCINATE [Suspect]
     Route: 042
     Dates: start: 20050504, end: 20050508

REACTIONS (7)
  - ANASTOMOTIC STENOSIS [None]
  - GASTROENTERITIS VIRAL [None]
  - HAEMATOMA [None]
  - RENAL FAILURE ACUTE [None]
  - STENOSIS OF VESICOURETHRAL ANASTOMOSIS [None]
  - URINARY TRACT OBSTRUCTION [None]
  - URINOMA [None]
